FAERS Safety Report 9147111 (Version 1)
Quarter: 2013Q1

REPORT INFORMATION
  Report Type: Spontaneous
  Country: US (occurrence: None)
  Receive Date: 20130208
  Receipt Date: 20130208
  Transmission Date: 20140127
  Serious: Yes (Death)
  Sender: FDA-Public Use
  Company Number: TPA2013A01236

PATIENT
  Age: 84 Year
  Sex: Male

DRUGS (1)
  1. PREVACID [Suspect]
     Indication: DYSPEPSIA
     Route: 048
     Dates: end: 20090927

REACTIONS (2)
  - Cardiomyopathy [None]
  - Myocardial ischaemia [None]
